FAERS Safety Report 17036690 (Version 1)
Quarter: 2019Q4

REPORT INFORMATION
  Report Type: Spontaneous
  Country: GB (occurrence: GB)
  Receive Date: 20191115
  Receipt Date: 20191115
  Transmission Date: 20200122
  Serious: Yes (Other)
  Sender: FDA-Public Use
  Company Number: GB-SA-2019SA317062

PATIENT
  Age: 60 Year
  Sex: Male

DRUGS (1)
  1. DUPILUMAB [Suspect]
     Active Substance: DUPILUMAB
     Indication: DERMATITIS ATOPIC
     Dosage: UNK

REACTIONS (7)
  - Rash [Unknown]
  - Lymphadenopathy [Unknown]
  - Ulcer [Unknown]
  - Skin plaque [Unknown]
  - Cutaneous T-cell lymphoma [Unknown]
  - Skin mass [Unknown]
  - Disease progression [Unknown]
